FAERS Safety Report 12157422 (Version 2)
Quarter: 2018Q1

REPORT INFORMATION
  Report Type: Spontaneous
  Country: US (occurrence: US)
  Receive Date: 20160308
  Receipt Date: 20180323
  Transmission Date: 20180508
  Serious: No
  Sender: FDA-Public Use
  Company Number: US-ASTRAZENECA-2016SE20994

PATIENT
  Age: 653 Month
  Sex: Male
  Weight: 102.1 kg

DRUGS (5)
  1. DUONEB [Concomitant]
     Active Substance: ALBUTEROL SULFATE\IPRATROPIUM BROMIDE
     Indication: DYSPNOEA
     Dosage: AS REQUIRED
  2. ALBUTEROL. [Concomitant]
     Active Substance: ALBUTEROL
     Indication: ADJUVANT THERAPY
     Dosage: TWO TIMES A DAY
     Route: 055
  3. SINGULAIR [Concomitant]
     Active Substance: MONTELUKAST SODIUM
  4. TUDORZA PRESSAIR [Suspect]
     Active Substance: ACLIDINIUM BROMIDE
     Indication: CHRONIC OBSTRUCTIVE PULMONARY DISEASE
     Route: 055
  5. BREO ELLIPTA [Concomitant]
     Active Substance: FLUTICASONE FUROATE\VILANTEROL TRIFENATATE
     Dosage: DAILY
     Route: 055

REACTIONS (7)
  - Dyspnoea [Recovered/Resolved]
  - Device malfunction [Unknown]
  - Pulmonary function test decreased [Unknown]
  - Underdose [Unknown]
  - Device failure [Unknown]
  - Feeling abnormal [Recovered/Resolved]
  - Drug dose omission [Unknown]

NARRATIVE: CASE EVENT DATE: 201602
